FAERS Safety Report 23995200 (Version 3)
Quarter: 2024Q3

REPORT INFORMATION
  Report Type: Spontaneous
  Country: JP (occurrence: JP)
  Receive Date: 20240620
  Receipt Date: 20240927
  Transmission Date: 20241017
  Serious: Yes (Other)
  Sender: EXELIXIS
  Company Number: JP-BRISTOL-MYERS SQUIBB COMPANY-BMS-2021-068510

PATIENT
  Age: 73 Year
  Sex: Male
  Weight: 67.4 kg

DRUGS (25)
  1. CABOMETYX [Suspect]
     Active Substance: CABOZANTINIB S-MALATE
     Indication: Renal cell carcinoma
     Dosage: 60 MG, QD, EVERYDAY, BEFORE BEDTIME
     Route: 048
     Dates: start: 20220610
  2. YERVOY [Suspect]
     Active Substance: IPILIMUMAB
     Indication: Metastatic renal cell carcinoma
     Dosage: 1 MG/KG, QD
     Route: 041
     Dates: start: 20210611, end: 20210611
  3. OPDIVO [Suspect]
     Active Substance: NIVOLUMAB
     Indication: Metastatic renal cell carcinoma
     Dosage: 240 MG, QD
     Route: 041
     Dates: start: 20210611, end: 20210611
  4. OPDIVO [Suspect]
     Active Substance: NIVOLUMAB
     Dosage: 240 MG, QD
     Route: 041
     Dates: start: 20210820, end: 20210820
  5. OPDIVO [Suspect]
     Active Substance: NIVOLUMAB
     Dosage: 240 MG, QD
     Route: 041
     Dates: start: 20210903, end: 20210903
  6. OPDIVO [Suspect]
     Active Substance: NIVOLUMAB
     Dosage: 240 MG, QD
     Route: 041
     Dates: start: 20210917, end: 20210917
  7. OPDIVO [Suspect]
     Active Substance: NIVOLUMAB
     Dosage: 240 MG, QD
     Route: 041
     Dates: start: 20210806, end: 20210806
  8. OPDIVO [Suspect]
     Active Substance: NIVOLUMAB
     Dosage: 240 MG, QD
     Route: 041
     Dates: start: 20211015, end: 20211015
  9. OPDIVO [Suspect]
     Active Substance: NIVOLUMAB
     Dosage: 240 MG, QD
     Route: 041
     Dates: start: 20211029, end: 20211029
  10. OPDIVO [Suspect]
     Active Substance: NIVOLUMAB
     Dosage: 240 MG, QD
     Route: 041
     Dates: start: 20211112, end: 20211112
  11. OPDIVO [Suspect]
     Active Substance: NIVOLUMAB
     Dosage: 240 MG, QD
     Route: 041
     Dates: start: 20211126, end: 20211126
  12. OPDIVO [Suspect]
     Active Substance: NIVOLUMAB
     Dosage: 240 MG, QD
     Route: 041
     Dates: start: 20211210, end: 20211210
  13. OPDIVO [Suspect]
     Active Substance: NIVOLUMAB
     Dosage: 240 MG, QD
     Route: 041
     Dates: start: 20211224, end: 20211224
  14. OPDIVO [Suspect]
     Active Substance: NIVOLUMAB
     Dosage: 240 MG, QD
     Route: 041
     Dates: start: 20220107, end: 20220107
  15. OPDIVO [Suspect]
     Active Substance: NIVOLUMAB
     Dosage: 240 MG, QD
     Route: 041
     Dates: start: 20220121, end: 20220121
  16. OPDIVO [Suspect]
     Active Substance: NIVOLUMAB
     Dosage: 240 MG, QD
     Route: 041
     Dates: start: 20220204, end: 20220204
  17. OPDIVO [Suspect]
     Active Substance: NIVOLUMAB
     Dosage: 240 MG, QD
     Route: 041
     Dates: start: 20220218, end: 20220218
  18. OPDIVO [Suspect]
     Active Substance: NIVOLUMAB
     Dosage: 240 MG, QD
     Route: 041
     Dates: start: 20220304, end: 20220304
  19. OPDIVO [Suspect]
     Active Substance: NIVOLUMAB
     Dosage: 240 MG, QD
     Route: 041
     Dates: start: 20220318, end: 20220318
  20. OPDIVO [Suspect]
     Active Substance: NIVOLUMAB
     Dosage: 240 MG, QD
     Route: 041
     Dates: start: 20220401, end: 20220401
  21. OPDIVO [Suspect]
     Active Substance: NIVOLUMAB
     Dosage: 240 MG, QD
     Route: 041
     Dates: start: 20220415, end: 20220415
  22. OPDIVO [Suspect]
     Active Substance: NIVOLUMAB
     Dosage: 240 MG, QD
     Route: 041
     Dates: start: 20220506, end: 20220506
  23. OPDIVO [Suspect]
     Active Substance: NIVOLUMAB
     Dosage: 240 MG, QD
     Route: 041
     Dates: start: 20220520, end: 20220520
  24. OPDIVO [Suspect]
     Active Substance: NIVOLUMAB
     Dosage: 240 MG, QD
     Route: 041
     Dates: start: 20220603, end: 20220603
  25. OPDIVO [Suspect]
     Active Substance: NIVOLUMAB
     Dosage: 240 MG
     Route: 041
     Dates: start: 20210806, end: 20220603

REACTIONS (16)
  - Dermal cyst [Recovered/Resolved]
  - Hepatic function abnormal [Recovered/Resolved]
  - Hypothyroidism [Recovering/Resolving]
  - Respiratory symptom [Unknown]
  - Gingivitis [Recovering/Resolving]
  - Oropharyngeal pain [Recovering/Resolving]
  - Blood sodium decreased [Unknown]
  - Hypertension [Unknown]
  - Constipation [Unknown]
  - Decreased appetite [Unknown]
  - Cough [Unknown]
  - Dry mouth [Recovering/Resolving]
  - Stomatitis [Recovering/Resolving]
  - Palmar-plantar erythrodysaesthesia syndrome [Recovered/Resolved]
  - Taste disorder [Unknown]
  - Inappropriate schedule of product administration [Unknown]

NARRATIVE: CASE EVENT DATE: 20210702
